FAERS Safety Report 20196264 (Version 2)
Quarter: 2021Q4

REPORT INFORMATION
  Report Type: Spontaneous
  Country: CN (occurrence: CN)
  Receive Date: 20211216
  Receipt Date: 20211220
  Transmission Date: 20220303
  Serious: Yes (Life-Threatening, Other)
  Sender: FDA-Public Use
  Company Number: CN-PFIZER INC-202101752245

PATIENT
  Age: 47 Year
  Weight: 56 kg

DRUGS (2)
  1. CYTARABINE [Suspect]
     Active Substance: CYTARABINE
     Indication: Neoplasm
     Dosage: 0.020 G, 2X/DAY
     Route: 058
     Dates: start: 20211128, end: 20211128
  2. DECITABINE [Concomitant]
     Active Substance: DECITABINE
     Indication: Neoplasm
     Dosage: 20.000 MG, 1X/DAY
     Route: 041
     Dates: start: 20211123, end: 20211127

REACTIONS (2)
  - Myelosuppression [Not Recovered/Not Resolved]
  - Cytopenia [Unknown]

NARRATIVE: CASE EVENT DATE: 20211203
